FAERS Safety Report 10916124 (Version 1)
Quarter: 2015Q1

REPORT INFORMATION
  Report Type: Spontaneous
  Country: US (occurrence: US)
  Receive Date: 20150316
  Receipt Date: 20150316
  Transmission Date: 20150721
  Serious: No
  Sender: FDA-Public Use
  Company Number: US-ASTRAZENECA-2015SE22146

PATIENT
  Age: 78 Year
  Sex: Female

DRUGS (1)
  1. PRILOSEC OTC [Suspect]
     Active Substance: OMEPRAZOLE MAGNESIUM
     Indication: OESOPHAGEAL DISORDER
     Route: 048
     Dates: start: 20150303

REACTIONS (11)
  - Muscular weakness [Recovering/Resolving]
  - Drug ineffective for unapproved indication [Unknown]
  - Tremor [Recovering/Resolving]
  - Dry mouth [Recovering/Resolving]
  - Nausea [Recovering/Resolving]
  - Product quality issue [Unknown]
  - Faeces discoloured [Recovered/Resolved]
  - Diarrhoea [Recovered/Resolved]
  - Sensation of foreign body [Recovering/Resolving]
  - Decreased appetite [Not Recovered/Not Resolved]
  - Abdominal pain upper [Not Recovered/Not Resolved]

NARRATIVE: CASE EVENT DATE: 20150302
